FAERS Safety Report 6243980-4 (Version None)
Quarter: 2009Q2

REPORT INFORMATION
  Report Type: 
  Country: None (occurrence: None)
  Receive Date: 20090623
  Receipt Date: 20090616
  Transmission Date: 20091009
  Serious: Yes (Life-Threatening)
  Sender: FDA-Public Use
  Company Number: 2009060023

PATIENT
  Age: 47 Year
  Sex: Female
  Weight: 90.7194 kg

DRUGS (8)
  1. SOMA [Suspect]
     Dosage: 350 MG (350 MG, 1 IN 1 AS REQUIRED)
     Route: 048
     Dates: start: 20050101
  2. AMRIX (CYCLOBENZAPRINE HCL) [Suspect]
     Indication: RHEUMATOID ARTHRITIS
     Dosage: 15 MG (15 MG, 1 IN 1 D), ORAL
     Route: 048
     Dates: start: 20090429, end: 20090429
  3. AMITRIPTYLINE HYDROCHLORIDE [Suspect]
     Dosage: 50 MG (50 MG, 1 IN 1 D),
     Dates: start: 20080101
  4. LORCET-HD [Suspect]
     Dosage: 10 MG (10 MG, 1 IN 1 AS REQUIRED)
     Dates: start: 20080101
  5. XANAX [Suspect]
     Dosage: 2 MG (1 MG, 2 IN 1 D)
     Dates: start: 20080101
  6. LYRICA [Suspect]
     Dosage: 100 MG (100 MG, 1 IN 1 D)
     Dates: start: 20090407
  7. ATENOLOL [Concomitant]
  8. HYDROCHLOROTHIAZIDE [Concomitant]

REACTIONS (7)
  - DRUG TOXICITY [None]
  - DYSPNOEA [None]
  - MEMORY IMPAIRMENT [None]
  - SOMNOLENCE [None]
  - URINARY INCONTINENCE [None]
  - URINARY RETENTION [None]
  - VOMITING [None]
